FAERS Safety Report 8392590-1 (Version None)
Quarter: 2012Q2

REPORT INFORMATION
  Report Type: 
  Country: None (occurrence: None)
  Receive Date: 20120529
  Receipt Date: 20120516
  Transmission Date: 20120825
  Serious: Yes (Life-Threatening, Hospitalization)
  Sender: FDA-Public Use
  Company Number: DE-JNJFOC-20120506852

PATIENT
  Sex: Female
  Weight: 67 kg

DRUGS (10)
  1. SIMVASTATIN [Concomitant]
  2. PANTOPRAZOLE [Concomitant]
  3. OXAZEPAM [Concomitant]
     Dosage: BY NIGHT
  4. LERCANIDIPINE [Concomitant]
  5. TORSEMIDE [Concomitant]
  6. XARELTO [Suspect]
     Indication: ATRIAL FIBRILLATION
     Route: 048
     Dates: start: 20120308
  7. MARCUMAR [Concomitant]
  8. XARELTO [Suspect]
     Indication: CEREBROVASCULAR ACCIDENT PROPHYLAXIS
     Route: 048
     Dates: start: 20120308
  9. METOPROLOL TARTRATE AND HYDROCHLOROTHIAZIDE [Concomitant]
  10. DIOVAN [Concomitant]

REACTIONS (5)
  - LIVER FUNCTION TEST ABNORMAL [None]
  - NAUSEA [None]
  - CARDIAC FAILURE [None]
  - RENAL FAILURE ACUTE [None]
  - URINARY TRACT INFECTION [None]
